FAERS Safety Report 21843012 (Version 2)
Quarter: 2023Q1

REPORT INFORMATION
  Report Type: Spontaneous
  Country: US (occurrence: US)
  Receive Date: 20230110
  Receipt Date: 20230117
  Transmission Date: 20230417
  Serious: Yes (Other)
  Sender: FDA-Public Use
  Company Number: US-PFIZER INC-PV202300002634

PATIENT
  Age: 69 Year
  Sex: Female

DRUGS (5)
  1. METHOTREXATE SODIUM [Suspect]
     Active Substance: METHOTREXATE SODIUM
     Indication: Rheumatoid arthritis
     Dosage: 5 MG, WEEKLY
  2. PENICILLAMINE [Suspect]
     Active Substance: PENICILLAMINE
     Indication: Rheumatoid arthritis
     Dosage: 250 MG, 1X/DAY
  3. PENICILLAMINE [Suspect]
     Active Substance: PENICILLAMINE
     Dosage: INCREASED BY 250 MG, 1X/DAY EVERY MONTH
  4. PENICILLAMINE [Suspect]
     Active Substance: PENICILLAMINE
     Dosage: 1 G, 1X/DAY
  5. SULINDAC [Concomitant]
     Active Substance: SULINDAC
     Indication: Rheumatoid arthritis
     Dosage: 150 MG, 2X/DAY

REACTIONS (2)
  - Rheumatoid nodule [Recovered/Resolved]
  - Condition aggravated [Recovered/Resolved]
